FAERS Safety Report 20437984 (Version 5)
Quarter: 2022Q2

REPORT INFORMATION
  Report Type: Spontaneous
  Country: US (occurrence: US)
  Receive Date: 20220207
  Receipt Date: 20220621
  Transmission Date: 20220721
  Serious: Yes (Hospitalization)
  Sender: FDA-Public Use
  Company Number: US-PFIZER INC-202200158407

PATIENT
  Age: 49 Year
  Sex: Female

DRUGS (8)
  1. IBRANCE [Suspect]
     Active Substance: PALBOCICLIB
     Indication: Breast cancer metastatic
     Dosage: 125 MG, CYCLIC (DAILY FOR 21 DAYS FOLLOWED BY 7 DAYS OFF)
     Route: 048
     Dates: start: 20220113
  2. IBRANCE [Suspect]
     Active Substance: PALBOCICLIB
     Dosage: 100 MG, CYCLIC (DAILY FOR 21 DAYS, THEN 7 DAYS OFF)
     Route: 048
     Dates: end: 20220525
  3. LETROZOLE [Concomitant]
     Active Substance: LETROZOLE
     Dosage: UNK
  4. GABAPENTIN [Concomitant]
     Active Substance: GABAPENTIN
     Dosage: UNK
  5. ACETAMINOPHEN\HYDROCODONE [Concomitant]
     Active Substance: ACETAMINOPHEN\HYDROCODONE
     Dosage: UNK
  6. AMLODIPINE BESYLATE [Concomitant]
     Active Substance: AMLODIPINE BESYLATE
     Dosage: UNK
  7. ZOLADEX [Concomitant]
     Active Substance: GOSERELIN ACETATE
     Dosage: UNK
  8. FEMARA [Concomitant]
     Active Substance: LETROZOLE
     Dosage: UNK

REACTIONS (5)
  - Escherichia infection [Unknown]
  - Lymphadenopathy [Unknown]
  - Gait disturbance [Unknown]
  - Limb discomfort [Unknown]
  - Sleep disorder [Unknown]

NARRATIVE: CASE EVENT DATE: 20220125
